FAERS Safety Report 5926233-0 (Version None)
Quarter: 2008Q4

REPORT INFORMATION
  Report Type: 
  Country: None (occurrence: None)
  Receive Date: 20081022
  Receipt Date: 20081017
  Transmission Date: 20090506
  Serious: Yes (Life-Threatening, Hospitalization)
  Sender: FDA-Public Use
  Company Number: GB-RANBAXY-2008RR-18758

PATIENT
  Age: 42 Year
  Sex: Female

DRUGS (4)
  1. GABAPENTIN [Suspect]
     Indication: PAIN
     Dosage: 100 MG, TID
     Route: 048
     Dates: start: 20080904
  2. NAPROXEN [Concomitant]
     Indication: PAIN
     Route: 048
  3. SOLPADOL [Concomitant]
     Indication: PAIN
     Dosage: 1 DF, UNK
     Route: 048
  4. SERVIDOL [Concomitant]
     Indication: PAIN
     Dosage: 10 MG, UNK
     Route: 048

REACTIONS (1)
  - ACUTE HEPATIC FAILURE [None]
